FAERS Safety Report 8603212-6 (Version None)
Quarter: 2012Q3

REPORT INFORMATION
  Report Type: 
  Country: None (occurrence: None)
  Receive Date: 20120817
  Receipt Date: 20120808
  Transmission Date: 20120928
  Serious: Yes (Hospitalization)
  Sender: FDA-Public Use
  Company Number: MX-ROCHE-1100029

PATIENT
  Sex: Female
  Weight: 49 kg

DRUGS (9)
  1. ARTRIDOL (BETAMETHASONE/INDOMETHACIN/METHOCARBAMOL) [Concomitant]
     Dosage: 1 CAP/3 DAY
     Dates: start: 20060101
  2. METHOTREXATE [Concomitant]
     Dates: start: 20071114
  3. LEVOTHYROXINE SODIUM [Concomitant]
     Dates: start: 20070920
  4. ACETAMINOPHEN [Concomitant]
     Dates: start: 20080819, end: 20110322
  5. ACETAMINOPHEN [Concomitant]
     Dates: start: 20110323
  6. DICLOFENAC [Concomitant]
     Dates: start: 20110323
  7. FOLIC ACID [Concomitant]
     Dates: start: 20000715
  8. DICLOFENAC [Concomitant]
     Dates: start: 20060507, end: 20110322
  9. MABTHERA [Suspect]
     Indication: RHEUMATOID ARTHRITIS
     Route: 042

REACTIONS (1)
  - OSTEONECROSIS [None]
